FAERS Safety Report 6041142-7 (Version None)
Quarter: 2009Q1

REPORT INFORMATION
  Report Type: 
  Country: None (occurrence: None)
  Receive Date: 20090116
  Receipt Date: 20080903
  Transmission Date: 20090719
  Serious: No
  Sender: FDA-Public Use
  Company Number: US-BRISTOL-MYERS SQUIBB COMPANY-14323661

PATIENT
  Age: 57 Year
  Sex: Female

DRUGS (4)
  1. ABILIFY [Suspect]
  2. EFFEXOR XR [Concomitant]
  3. NEXIUM [Concomitant]
  4. CYMBALTA [Concomitant]

REACTIONS (3)
  - TONGUE DISORDER [None]
  - TONGUE ULCERATION [None]
  - TOOTH EROSION [None]
